FAERS Safety Report 17394600 (Version 1)
Quarter: 2020Q1

REPORT INFORMATION
  Report Type: Spontaneous
  Country: US (occurrence: US)
  Receive Date: 20200210
  Receipt Date: 20200210
  Transmission Date: 20200409
  Serious: No
  Sender: FDA-Public Use
  Company Number: US-ALKEM LABORATORIES LIMITED-US-ALKEM-2019-08680

PATIENT
  Sex: Female
  Weight: 82 kg

DRUGS (9)
  1. METHOTREXATE. [Suspect]
     Active Substance: METHOTREXATE
     Indication: RHEUMATOID ARTHRITIS
     Dosage: 10-2.5 MG TABLETS TAKEN BY MOUTH ONCE WEEKLY
     Route: 048
  2. BUPROPION SR [Concomitant]
     Active Substance: BUPROPION HYDROCHLORIDE
     Indication: DEPRESSION
     Dosage: 150 MILLIGRAM, TID, (1 IN MORNING AND 1 IN AFTERNOON)
     Route: 048
  3. DULOXETINE. [Concomitant]
     Active Substance: DULOXETINE
     Indication: PAIN
     Dosage: 6 MILLIGRAM, OD
     Route: 048
  4. GABAPENTIN. [Suspect]
     Active Substance: GABAPENTIN
     Indication: PAIN
     Dosage: 2 DOSAGE FORM, TID (300 MG TABLET)
     Route: 048
     Dates: end: 201907
  5. XELJANZ XR [Suspect]
     Active Substance: TOFACITINIB CITRATE
     Indication: RHEUMATOID ARTHRITIS
     Dosage: 1-11MG TABLETS TAKEN BY MOUTH ONCE DAILY
     Route: 048
  6. TRAMADOL. [Concomitant]
     Active Substance: TRAMADOL
     Indication: PAIN
     Dosage: 50 MILLIGRAM, BID
     Route: 048
  7. CYCLOBENZAPRINE. [Concomitant]
     Active Substance: CYCLOBENZAPRINE
     Indication: PAIN
     Dosage: 10 MILLIGRAM, TID
     Route: 048
  8. HYDROXYZINE [Concomitant]
     Active Substance: HYDROXYZINE HYDROCHLORIDE
     Indication: SLEEP DISORDER
     Dosage: 2-50 MG CAPSULES TAKEN BY MOUTH AT BEDTIME DAILY
     Route: 048
  9. DICLOFENAC [Concomitant]
     Active Substance: DICLOFENAC
     Indication: PAIN
     Dosage: 75 MILLIGRAM, BID
     Route: 048

REACTIONS (3)
  - Off label use [Unknown]
  - Alopecia [Not Recovered/Not Resolved]
  - Drug effective for unapproved indication [Unknown]

NARRATIVE: CASE EVENT DATE: 2019
